FAERS Safety Report 5358366-4 (Version None)
Quarter: 2007Q2

REPORT INFORMATION
  Report Type: 
  Country: None (occurrence: None)
  Receive Date: 20070530
  Receipt Date: 20061211
  Transmission Date: 20071010
  Serious: Yes (Hospitalization, Other)
  Sender: FDA-Public Use
  Company Number: US200601002690

PATIENT
  Age: 45 Year
  Sex: Female
  Weight: 132 kg

DRUGS (4)
  1. ZYPREXA [Suspect]
     Indication: DEPRESSION
     Dosage: SEE IMAGE
     Route: 048
     Dates: start: 20020314
  2. ZYPREXA [Suspect]
     Indication: DEPRESSION
     Dosage: SEE IMAGE
     Route: 048
     Dates: start: 20020801
  3. PROZAC [Concomitant]
  4. ARIPIPRAZOLE [Concomitant]

REACTIONS (6)
  - DIABETES MELLITUS [None]
  - HYPERGLYCAEMIA [None]
  - HYPERINSULINAEMIA [None]
  - HYPERTENSION [None]
  - OBESITY [None]
  - WEIGHT INCREASED [None]
